FAERS Safety Report 9200565 (Version 1)
Quarter: 2013Q1

REPORT INFORMATION
  Report Type: Report from Study
  Country: US (occurrence: US)
  Receive Date: 20130329
  Receipt Date: 20130329
  Transmission Date: 20140127
  Serious: Yes (Hospitalization, Other)
  Sender: FDA-Public Use
  Company Number: US-PFIZER INC-2008012868JJ

PATIENT
  Age: 50 Year
  Sex: Female
  Weight: 71.21 kg

DRUGS (7)
  1. MOTRIN [Suspect]
     Indication: NECK PAIN
     Dosage: UNK
     Route: 048
     Dates: end: 20080328
  2. MOTRIN [Suspect]
     Indication: PAIN
     Dosage: 800 MG, AS NEEDED
     Route: 048
     Dates: start: 200803, end: 20080428
  3. MOTRIN [Suspect]
     Dosage: UNK
     Dates: start: 200903
  4. VITAMINS [Concomitant]
     Dosage: UNK
     Route: 048
  5. ASPIRIN [Concomitant]
     Dosage: UNK
  6. OXYTOCIN [Concomitant]
     Dosage: UNK
  7. PERCOCET [Concomitant]
     Dosage: UNK

REACTIONS (20)
  - Faeces discoloured [Recovered/Resolved]
  - Faeces discoloured [Recovered/Resolved]
  - Disability [Recovering/Resolving]
  - Lung disorder [Recovering/Resolving]
  - Abnormal faeces [Recovered/Resolved]
  - Headache [Recovering/Resolving]
  - Insomnia [Recovering/Resolving]
  - Head discomfort [Unknown]
  - Feeling abnormal [Unknown]
  - Malaise [Recovering/Resolving]
  - Ear disorder [Unknown]
  - Neuralgia [Unknown]
  - Weight increased [Unknown]
  - Pain [Recovering/Resolving]
  - Gait disturbance [Recovering/Resolving]
  - Hypoaesthesia [Recovering/Resolving]
  - Rhinorrhoea [Not Recovered/Not Resolved]
  - Nasal congestion [Recovering/Resolving]
  - Arrhythmia [Unknown]
  - Gastric haemorrhage [Recovered/Resolved]
